FAERS Safety Report 7792359-2 (Version None)
Quarter: 2011Q4

REPORT INFORMATION
  Report Type: 
  Country: None (occurrence: None)
  Receive Date: 20111003
  Receipt Date: 20110927
  Transmission Date: 20120403
  Serious: Yes (Other)
  Sender: FDA-Public Use
  Company Number: PHEH2011US01895

PATIENT
  Sex: Male
  Weight: 90.09 kg

DRUGS (3)
  1. EXJADE [Suspect]
     Indication: NEOPLASM
     Dosage: 750 MG, DAILY
     Route: 048
     Dates: start: 20090501
  2. EXJADE [Suspect]
     Dosage: UNK UKN, UNK
     Route: 048
     Dates: start: 20100801
  3. EXJADE [Suspect]
     Dosage: 250 MG, 7QD

REACTIONS (3)
  - BLOOD CREATININE INCREASED [None]
  - GOUT [None]
  - INCORRECT DOSE ADMINISTERED [None]
